FAERS Safety Report 14651222 (Version 1)
Quarter: 2018Q1

REPORT INFORMATION
  Report Type: Spontaneous
  Country: SE (occurrence: SE)
  Receive Date: 20180316
  Receipt Date: 20180316
  Transmission Date: 20180509
  Serious: Yes (Other)
  Sender: FDA-Public Use
  Company Number: SE-BRISTOL-MYERS SQUIBB COMPANY-BMS-2018-023217

PATIENT
  Age: 67 Year
  Sex: Female

DRUGS (4)
  1. METOPROLOL SANDOZ                  /00376902/ [Suspect]
     Active Substance: METOPROLOL
     Indication: PRODUCT USED FOR UNKNOWN INDICATION
     Dosage: 25 MG, QD
     Route: 065
     Dates: start: 20180202, end: 2018
  2. ELIQUIS [Suspect]
     Active Substance: APIXABAN
     Indication: CEREBROVASCULAR ACCIDENT PROPHYLAXIS
     Dosage: 5 MG, BID
     Route: 048
     Dates: end: 20180202
  3. METOPROLOL SANDOZ                  /00376902/ [Suspect]
     Active Substance: METOPROLOL
     Indication: PRODUCT USED FOR UNKNOWN INDICATION
     Dosage: 25 MG, QD
     Route: 065
     Dates: start: 20170922, end: 20171214
  4. MULTAQ [Suspect]
     Active Substance: DRONEDARONE
     Indication: PRODUCT USED FOR UNKNOWN INDICATION
     Dosage: UNK
     Route: 065

REACTIONS (7)
  - Arthralgia [Unknown]
  - Osteoarthritis [Unknown]
  - Meniscus injury [Unknown]
  - General physical health deterioration [Unknown]
  - Subchondral insufficiency fracture [Unknown]
  - Synovial cyst [Unknown]
  - Back pain [Unknown]

NARRATIVE: CASE EVENT DATE: 20171005
